FAERS Safety Report 18995741 (Version 2)
Quarter: 2021Q1

REPORT INFORMATION
  Report Type: Report from Study
  Country: None (occurrence: IL)
  Receive Date: 20210311
  Receipt Date: 20210317
  Transmission Date: 20210420
  Serious: Yes (Hospitalization, Other)
  Sender: FDA-Public Use
  Company Number: IL-ABBVIE-21K-082-3806186-00

PATIENT
  Age: 61 Year
  Sex: Male
  Weight: 83 kg

DRUGS (8)
  1. DOPICAR [Concomitant]
     Active Substance: CARBIDOPA\LEVODOPA
     Dates: start: 20210202
  2. DUODOPA [Suspect]
     Active Substance: CARBIDOPA\LEVODOPA
     Dosage: MD(ML) 15.0 , ADDITIONAL TUBE FILING (ML) 3.0, CD (ML/H) 5.0 , EXTRA DOSAGE (ML) 2.5.
     Route: 050
     Dates: start: 2021
  3. LOSARTAN POTASSIUM. [Concomitant]
     Active Substance: LOSARTAN POTASSIUM
     Indication: HYPERTENSION
     Dates: start: 20190219
  4. DOPICAR [Concomitant]
     Active Substance: CARBIDOPA\LEVODOPA
     Indication: PARKINSON^S DISEASE
     Dates: start: 20170705, end: 20210202
  5. TORVA [Concomitant]
     Indication: LIPID METABOLISM DISORDER
     Dates: start: 20210124
  6. CARDILOC [Concomitant]
     Active Substance: BISOPROLOL FUMARATE
     Indication: HYPERTENSION
     Dates: start: 20171119
  7. ELTROXIN [Concomitant]
     Active Substance: LEVOTHYROXINE
     Indication: HYPOTHYROIDISM
     Dates: start: 20170313
  8. DUODOPA [Suspect]
     Active Substance: CARBIDOPA\LEVODOPA
     Indication: PARKINSON^S DISEASE
     Dosage: MD 18ML, CD 5ML/HR, EXTRA DOSE 2.5ML PER DOSE, DAILY TREATMENT DURATION 16 HOURS
     Route: 050
     Dates: start: 20210202, end: 2021

REACTIONS (6)
  - Dropped head syndrome [Recovering/Resolving]
  - Myasthenia gravis [Recovering/Resolving]
  - Myasthenia gravis [Recovered/Resolved]
  - Paralysis [Recovered/Resolved]
  - Muscular weakness [Recovered/Resolved]
  - Hemiparesis [Recovered/Resolved]

NARRATIVE: CASE EVENT DATE: 2021
